FAERS Safety Report 6480600-8 (Version None)
Quarter: 2009Q4

REPORT INFORMATION
  Report Type: 
  Country: None (occurrence: None)
  Receive Date: 20091208
  Receipt Date: 20091130
  Transmission Date: 20100525
  Serious: Yes (Death)
  Sender: FDA-Public Use
  Company Number: JP-BRACCO-002871

PATIENT
  Sex: Male

DRUGS (6)
  1. IOPAMIDOL [Suspect]
     Indication: COMPUTERISED TOMOGRAM
     Route: 042
     Dates: start: 20091103, end: 20091103
  2. IOPAMIDOL [Suspect]
     Indication: GINGIVAL CANCER
     Route: 042
     Dates: start: 20091103, end: 20091103
  3. LACTEC [Concomitant]
     Route: 041
     Dates: start: 20091103, end: 20091103
  4. SOLU-CORTEF [Concomitant]
     Route: 042
     Dates: start: 20091103, end: 20091103
  5. EPINEPHRINE [Concomitant]
     Route: 042
     Dates: start: 20091103, end: 20091103
  6. EPINEPHRINE [Concomitant]
     Route: 042
     Dates: start: 20091103, end: 20091103

REACTIONS (1)
  - ANAPHYLACTIC SHOCK [None]
